FAERS Safety Report 6059681-1 (Version None)
Quarter: 2009Q1

REPORT INFORMATION
  Report Type: 
  Country: None (occurrence: None)
  Receive Date: 20090130
  Receipt Date: 20090122
  Transmission Date: 20090719
  Serious: Yes (Hospitalization)
  Sender: FDA-Public Use
  Company Number: DE-ABBOTT-06P-062-0327432-00

PATIENT
  Sex: Female

DRUGS (10)
  1. HUMIRA [Suspect]
     Indication: RHEUMATOID ARTHRITIS
     Route: 058
     Dates: start: 20040108, end: 20060125
  2. HUMIRA [Suspect]
     Route: 058
     Dates: start: 20060405, end: 20070217
  3. METOPROLOL [Concomitant]
     Indication: HYPERTENSION
     Dates: start: 20040101
  4. BLOPRESS [Concomitant]
     Indication: HYPERTENSION
     Dates: start: 20020101
  5. NEXIUM [Concomitant]
     Indication: GASTROOESOPHAGEAL REFLUX DISEASE
     Dates: start: 20000901
  6. LINOLA-FETT [Concomitant]
     Indication: DRY SKIN
     Dosage: APPROXIMATELY 3 CM
     Dates: start: 20040101
  7. BEPANTHEN [Concomitant]
     Indication: NASAL DRYNESS
     Dosage: APPROXIMATELY 0.5CM
     Dates: start: 20050815
  8. HUMIRA [Concomitant]
     Indication: RHEUMATOID ARTHRITIS
     Route: 058
     Dates: start: 20031010
  9. METHOTREXATE [Concomitant]
     Indication: RHEUMATOID ARTHRITIS
     Dates: start: 20031215, end: 20040402
  10. METHOTREXATE [Concomitant]
     Dates: start: 20070101, end: 20070313

REACTIONS (1)
  - GAMMA-GLUTAMYLTRANSFERASE INCREASED [None]
